FAERS Safety Report 9008330 (Version 2)
Quarter: 2013Q1

REPORT INFORMATION
  Report Type: Spontaneous
  Country: US (occurrence: None)
  Receive Date: 20121227
  Receipt Date: 20130213
  Transmission Date: 20140127
  Serious: Yes (Death, Other)
  Sender: FDA-Public Use
  Company Number: TPA2012A10123

PATIENT
  Age: 67 Year
  Sex: Male
  Weight: 104.33 kg

DRUGS (4)
  1. ACTOS [Suspect]
     Indication: TYPE 2 DIABETES MELLITUS
     Dates: start: 2005
  2. GLUCOPHAGE (METFORMIN HYDROCHLORIDE) [Concomitant]
  3. DIABETA (GLIBENCLAMIDE) [Concomitant]
  4. LANTUS (INSULIN GLARGINE) [Concomitant]

REACTIONS (1)
  - Bladder cancer [None]
